FAERS Safety Report 25353408 (Version 1)
Quarter: 2025Q2

REPORT INFORMATION
  Report Type: Spontaneous
  Country: GB (occurrence: GB)
  Receive Date: 20250523
  Receipt Date: 20250523
  Transmission Date: 20250716
  Serious: Yes (Other)
  Sender: TEVA
  Company Number: None

PATIENT
  Age: 20 Year
  Sex: Male

DRUGS (2)
  1. OLANZAPINE [Suspect]
     Active Substance: OLANZAPINE
     Indication: Bipolar disorder
     Dosage: DAILY DOSE: 15 MG DAILY
     Route: 065
     Dates: start: 2019
  2. QUETIAPINE [Concomitant]
     Active Substance: QUETIAPINE
     Indication: Bipolar disorder
     Dates: start: 201901

REACTIONS (4)
  - Sperm concentration [Not Recovered/Not Resolved]
  - Spermatozoa progressive motility decreased [Not Recovered/Not Resolved]
  - Spermatozoa progressive motility abnormal [Not Recovered/Not Resolved]
  - Sperm concentration zero [Not Recovered/Not Resolved]

NARRATIVE: CASE EVENT DATE: 20190109
